FAERS Safety Report 20837629 (Version 1)
Quarter: 2022Q2

REPORT INFORMATION
  Report Type: Other
  Country: CA (occurrence: None)
  Receive Date: 20220517
  Receipt Date: 20220517
  Transmission Date: 20220720
  Serious: No
  Sender: FDA-Public Use
  Company Number: CA-ROCHE-3094008

PATIENT
  Sex: Female

DRUGS (2)
  1. OCREVUS [Suspect]
     Active Substance: OCRELIZUMAB
     Indication: Relapsing-remitting multiple sclerosis
     Dosage: 300 MG AT DAY 0 AND 14, THEN 600 MG EVERY 6 MONTHS.?LAST DOSE WAS RECEIVED IN NOV/2020
     Route: 042
     Dates: start: 20191022
  2. TYSABRI [Concomitant]
     Active Substance: NATALIZUMAB

REACTIONS (1)
  - JC polyomavirus test positive [Unknown]
